FAERS Safety Report 17109009 (Version 2)
Quarter: 2019Q4

REPORT INFORMATION
  Report Type: Spontaneous
  Country: FR (occurrence: FR)
  Receive Date: 20191204
  Receipt Date: 20191231
  Transmission Date: 20200122
  Serious: Yes (Other)
  Sender: FDA-Public Use
  Company Number: FR-LUPIN PHARMACEUTICALS INC.-2019-07993

PATIENT
  Age: 29 Year
  Sex: Female

DRUGS (3)
  1. BUDESONIDE. [Interacting]
     Active Substance: BUDESONIDE
     Dosage: GRADUALLY DECREASED
     Route: 065
  2. EVIPLERA [Interacting]
     Active Substance: EMTRICITABINE\RILPIVIRINE\TENOFOVIR DISOPROXIL FUMARATE
     Indication: HIV INFECTION
     Dosage: UNK, ADMINISTERED AT THERAPEUTIC DOSE
     Route: 065
  3. BUDESONIDE. [Suspect]
     Active Substance: BUDESONIDE
     Indication: CROHN^S DISEASE
     Dosage: 9 MILLIGRAM, QD, ADMINISTERED AT THERAPEUTIC DOSE, 9 MG/24 HRS WAS PRESCRIBED
     Route: 065

REACTIONS (6)
  - Hypertension [Recovered/Resolved]
  - Steroid diabetes [Recovered/Resolved]
  - Toxicity to various agents [Recovered/Resolved]
  - Cushing^s syndrome [Recovered/Resolved]
  - Hypokalaemia [Recovered/Resolved]
  - Drug interaction [Unknown]
